FAERS Safety Report 4707462-0 (Version None)
Quarter: 2005Q3

REPORT INFORMATION
  Report Type: 
  Country: None (occurrence: None)
  Receive Date: 20050706
  Receipt Date: 20050629
  Transmission Date: 20060218
  Serious: Yes (Other)
  Sender: FDA-Public Use
  Company Number: A0564859A

PATIENT
  Age: 82 Year
  Sex: Female

DRUGS (1)
  1. RELAFEN [Suspect]
     Indication: DRUG USE FOR UNKNOWN INDICATION
     Route: 065

REACTIONS (5)
  - ANOREXIA [None]
  - CRYING [None]
  - DEPRESSION [None]
  - DIZZINESS [None]
  - SUICIDAL IDEATION [None]
